FAERS Safety Report 25341049 (Version 1)
Quarter: 2025Q2

REPORT INFORMATION
  Report Type: Spontaneous
  Country: US (occurrence: None)
  Receive Date: 20250520
  Receipt Date: 20250520
  Transmission Date: 20250717
  Serious: Yes (Disabling)
  Sender: FDA-CTU
  Company Number: None

PATIENT
  Age: 78 Year
  Sex: Male
  Weight: 110.22 kg

DRUGS (1)
  1. DILANTIN [Suspect]
     Active Substance: PHENYTOIN
     Indication: Seizure
     Dosage: FREQUENCY : TWICE A DAY;?
     Dates: start: 1986

REACTIONS (4)
  - Nerve injury [None]
  - Therapy change [None]
  - Seizure [None]
  - Hypoaesthesia [None]
